FAERS Safety Report 6260276-5 (Version None)
Quarter: 2009Q3

REPORT INFORMATION
  Report Type: 
  Country: None (occurrence: None)
  Receive Date: 20090706
  Receipt Date: 20090622
  Transmission Date: 20100115
  Serious: Yes (Hospitalization)
  Sender: FDA-Public Use
  Company Number: 09-001015

PATIENT
  Age: 47 Year
  Sex: Male

DRUGS (2)
  1. TACLONEX [Suspect]
     Indication: PSORIASIS
     Dosage: TOPICAL
     Route: 061
     Dates: start: 20090501, end: 20090606
  2. BUSPIRONE HCL [Suspect]
     Dates: start: 20090501, end: 20090606

REACTIONS (2)
  - ERYTHRODERMIC PSORIASIS [None]
  - TOXIC SKIN ERUPTION [None]
